FAERS Safety Report 4382963-6 (Version None)
Quarter: 2004Q2

REPORT INFORMATION
  Report Type: 
  Country: None (occurrence: None)
  Receive Date: 20040617
  Receipt Date: 20040607
  Transmission Date: 20050107
  Serious: Yes (Death)
  Sender: FDA-Public Use
  Company Number: 04P-163-0262645-00

PATIENT
  Age: 61 Year
  Sex: Male

DRUGS (1)
  1. BIAXIN XL [Suspect]
     Indication: ACUTE SINUSITIS
     Dosage: 2 TABLET, 3 IN 1 D, PER ORAL
     Route: 048
     Dates: start: 20040429, end: 20040506

REACTIONS (6)
  - ABDOMINAL DISTENSION [None]
  - ABDOMINAL PAIN UPPER [None]
  - ACCIDENTAL OVERDOSE [None]
  - DYSURIA [None]
  - FEELING ABNORMAL [None]
  - HYPERHIDROSIS [None]
